FAERS Safety Report 4307256-4 (Version None)
Quarter: 2004Q1

REPORT INFORMATION
  Report Type: 
  Country: None (occurrence: None)
  Receive Date: 20040227
  Receipt Date: 20040217
  Transmission Date: 20041129
  Serious: Yes (Other)
  Sender: FDA-Public Use
  Company Number: WAES 0402USA01286

PATIENT
  Age: 61 Year
  Sex: Female

DRUGS (5)
  1. FOSAMAX [Suspect]
     Indication: OSTEOPOROSIS
     Route: 048
     Dates: start: 20031102, end: 20031102
  2. CARBATROL [Concomitant]
  3. PROZAC [Concomitant]
  4. KEPPRA [Concomitant]
  5. ZYPREXA [Concomitant]

REACTIONS (3)
  - DIZZINESS [None]
  - FALL [None]
  - HIP FRACTURE [None]
